FAERS Safety Report 17772446 (Version 5)
Quarter: 2020Q3

REPORT INFORMATION
  Report Type: Spontaneous
  Country: DE (occurrence: DE)
  Receive Date: 20200512
  Receipt Date: 20200707
  Transmission Date: 20201102
  Serious: Yes (Hospitalization)
  Sender: FDA-Public Use
  Company Number: NVSC2020DE126523

PATIENT
  Age: 74 Year
  Sex: Female

DRUGS (2)
  1. CLINDAMYCIN HYDROCHLORIDE. [Suspect]
     Active Substance: CLINDAMYCIN HYDROCHLORIDE
     Indication: PERIODONTITIS
  2. CLINDAMYCIN HYDROCHLORIDE. [Suspect]
     Active Substance: CLINDAMYCIN HYDROCHLORIDE
     Indication: NONINFECTIVE GINGIVITIS
     Dosage: 450 MG, TID (3X 450 MG)
     Route: 048
     Dates: start: 20190911, end: 20190917

REACTIONS (7)
  - Rheumatoid arthritis [Unknown]
  - Insomnia [Unknown]
  - Arthralgia [Unknown]
  - Pain [Unknown]
  - Musculoskeletal stiffness [Unknown]
  - Myalgia [Unknown]
  - Pelvic girdle pain [Unknown]

NARRATIVE: CASE EVENT DATE: 201910
